FAERS Safety Report 17545474 (Version 1)
Quarter: 2020Q1

REPORT INFORMATION
  Report Type: Spontaneous
  Country: US (occurrence: US)
  Receive Date: 20200316
  Receipt Date: 20200316
  Transmission Date: 20200409
  Serious: Yes (Hospitalization)
  Sender: FDA-Public Use
  Company Number: US-PFIZER INC-2020111853

PATIENT
  Age: 51 Year
  Sex: Female

DRUGS (4)
  1. ADRIAMYCIN [Concomitant]
     Active Substance: DOXORUBICIN HYDROCHLORIDE
     Dosage: UNK
  2. DOXIL [Concomitant]
     Active Substance: DOXORUBICIN HYDROCHLORIDE
     Dosage: UNK
  3. NEOSAR [Concomitant]
     Active Substance: CYCLOPHOSPHAMIDE
     Dosage: UNK
  4. DOCETAXEL. [Suspect]
     Active Substance: DOCETAXEL
     Indication: BREAST CANCER
     Dosage: 131 MG, EVERY THREE WEEKS, NUMBER OF CYCLES: 6
     Dates: start: 20160706, end: 20161017

REACTIONS (6)
  - Alopecia [Unknown]
  - Hair texture abnormal [Unknown]
  - Infection [Unknown]
  - Hair colour changes [Unknown]
  - White blood cell count decreased [Unknown]
  - Hair disorder [Unknown]

NARRATIVE: CASE EVENT DATE: 20161017
